FAERS Safety Report 23965495 (Version 1)
Quarter: 2024Q2

REPORT INFORMATION
  Report Type: Spontaneous
  Country: US (occurrence: US)
  Receive Date: 20240612
  Receipt Date: 20240612
  Transmission Date: 20240716
  Serious: No
  Sender: FDA-Public Use
  Company Number: US-AUROBINDO-AUR-APL-2023-038484

PATIENT
  Age: 46 Year
  Sex: Male
  Weight: 113.3 kg

DRUGS (1)
  1. DIVALPROEX SODIUM DR [Suspect]
     Active Substance: DIVALPROEX SODIUM
     Indication: Bipolar disorder
     Dosage: 1000 MILLIGRAM, TWO TIMES A DAY(BOTTLES OF 100)
     Route: 048
     Dates: start: 20230118, end: 20230301

REACTIONS (3)
  - Anger [Recovered/Resolved]
  - Mood swings [Recovered/Resolved]
  - Drug ineffective [Recovered/Resolved]
